FAERS Safety Report 15589569 (Version 1)
Quarter: 2018Q4

REPORT INFORMATION
  Report Type: Spontaneous
  Country: FR (occurrence: FR)
  Receive Date: 20181106
  Receipt Date: 20181106
  Transmission Date: 20190205
  Serious: Yes (Hospitalization)
  Sender: FDA-Public Use
  Company Number: FR-ACCORD-091254

PATIENT
  Age: 60 Year
  Sex: Female
  Weight: 61 kg

DRUGS (11)
  1. MIRTAZAPINE. [Concomitant]
     Active Substance: MIRTAZAPINE
  2. FOLIC ACID. [Concomitant]
     Active Substance: FOLIC ACID
  3. BETAMETHASONE DIPROPIONATE/BETAMETHASONE SODIUM PHOSPHATE [Concomitant]
  4. BETAMETHASONE DIPROPIONATE/CALCIPOTRIOL [Concomitant]
  5. ADALIMUMAB [Suspect]
     Active Substance: ADALIMUMAB
     Indication: PRODUCT USED FOR UNKNOWN INDICATION
     Route: 058
     Dates: start: 20120926, end: 20170524
  6. ZOPICLONE [Concomitant]
     Active Substance: ZOPICLONE
  7. PERINDOPRIL/PERINDOPRIL ERBUMINE [Concomitant]
  8. ZOPICLONE [Concomitant]
     Active Substance: ZOPICLONE
  9. ATORVASTATIN [Concomitant]
     Active Substance: ATORVASTATIN
  10. ACETYLSALICYLATE LYSINE/ACETYLSALICYLIC ACID [Concomitant]
  11. METHOTREXATE. [Suspect]
     Active Substance: METHOTREXATE
     Indication: PRODUCT USED FOR UNKNOWN INDICATION
     Route: 048
     Dates: start: 20170524

REACTIONS (1)
  - Acute coronary syndrome [Recovered/Resolved]
